FAERS Safety Report 19815233 (Version 1)
Quarter: 2021Q3

REPORT INFORMATION
  Report Type: Spontaneous
  Country: IT (occurrence: IT)
  Receive Date: 20210909
  Receipt Date: 20210909
  Transmission Date: 20211014
  Serious: Yes (Hospitalization)
  Sender: FDA-Public Use
  Company Number: IT-MYLANLABS-2021M1059220

PATIENT
  Age: 72 Year
  Sex: Female
  Weight: 90 kg

DRUGS (5)
  1. METFORMINA ALMUS [Concomitant]
     Indication: DIABETES MELLITUS
     Dosage: 1 GRAM
     Route: 048
  2. NOBISTAR [Concomitant]
     Active Substance: NEBIVOLOL HYDROCHLORIDE
     Indication: HYPERTENSION
     Dosage: 5 MILLIGRAM
     Route: 048
  3. TEGRETOL [Suspect]
     Active Substance: CARBAMAZEPINE
     Indication: TENSION HEADACHE
     Dosage: 800 MILLIGRAM, QD
     Route: 048
     Dates: start: 20210228, end: 20210302
  4. VALTRAX [Suspect]
     Active Substance: DIAZEPAM\ISOPROPAMIDE IODIDE
     Indication: TENSION HEADACHE
     Dosage: 1 DOSAGE FORM, QD
     Route: 048
     Dates: start: 20210228, end: 20210302
  5. LIMBITRYL 12.5 MG/5 MG CAPSULE RIGIDE [Suspect]
     Active Substance: AMITRIPTYLINE HYDROCHLORIDE\CHLORDIAZEPOXIDE HYDROCHLORIDE
     Indication: TENSION HEADACHE
     Dosage: 1 DOSAGE FORM, QD
     Route: 048
     Dates: start: 20210228, end: 20210302

REACTIONS (1)
  - Encephalopathy [Recovered/Resolved]

NARRATIVE: CASE EVENT DATE: 20210304
